FAERS Safety Report 23372938 (Version 1)
Quarter: 2024Q1

REPORT INFORMATION
  Report Type: Spontaneous
  Country: US (occurrence: US)
  Receive Date: 20240105
  Receipt Date: 20240105
  Transmission Date: 20240409
  Serious: Yes (Hospitalization)
  Sender: FDA-Public Use
  Company Number: US-RADIUS HEALTH INC.-2023US006767

PATIENT
  Age: 86 Year
  Sex: Female

DRUGS (1)
  1. TYMLOS [Suspect]
     Active Substance: ABALOPARATIDE
     Indication: Product used for unknown indication
     Dosage: 80 MICROGRAM
     Route: 058
     Dates: start: 20231011, end: 20231218

REACTIONS (8)
  - Vascular injury [Recovering/Resolving]
  - Internal haemorrhage [Recovering/Resolving]
  - Injection site bruising [Recovering/Resolving]
  - Injection site pain [Recovering/Resolving]
  - Injection site swelling [Recovering/Resolving]
  - Abdominal pain [Recovering/Resolving]
  - Needle issue [Recovering/Resolving]
  - Product use complaint [Unknown]

NARRATIVE: CASE EVENT DATE: 20231218
